FAERS Safety Report 6382641-8 (Version None)
Quarter: 2009Q3

REPORT INFORMATION
  Report Type: 
  Country: None (occurrence: None)
  Receive Date: 20090930
  Receipt Date: 20090925
  Transmission Date: 20100115
  Serious: Yes (Hospitalization)
  Sender: FDA-Public Use
  Company Number: US-JNJFOC-20090908015

PATIENT
  Sex: Female
  Weight: 69.85 kg

DRUGS (2)
  1. DURAGESIC-100 [Suspect]
     Indication: POLYMYOSITIS
     Route: 062
     Dates: start: 20020101, end: 20090924
  2. OXYCONTIN [Concomitant]
     Indication: PAIN
     Dosage: AS NEEDED
     Route: 048

REACTIONS (3)
  - CHEST PAIN [None]
  - INAPPROPRIATE SCHEDULE OF DRUG ADMINISTRATION [None]
  - POLYMYOSITIS [None]
